FAERS Safety Report 10055791 (Version 1)
Quarter: 2014Q2

REPORT INFORMATION
  Report Type: Spontaneous
  Country: US (occurrence: US)
  Receive Date: 20140403
  Receipt Date: 20140403
  Transmission Date: 20141212
  Serious: Yes (Other)
  Sender: FDA-Public Use
  Company Number: US-BAYER-2014-049098

PATIENT
  Age: 46 Year
  Sex: Female
  Weight: 71.2 kg

DRUGS (3)
  1. YAZ [Suspect]
  2. YASMIN [Suspect]
  3. DILANTIN [Concomitant]

REACTIONS (1)
  - Transverse sinus thrombosis [Recovered/Resolved]
